FAERS Safety Report 5894932-5 (Version None)
Quarter: 2008Q3

REPORT INFORMATION
  Report Type: 
  Country: None (occurrence: None)
  Receive Date: 20080924
  Receipt Date: 20080916
  Transmission Date: 20090109
  Serious: Yes (Hospitalization)
  Sender: FDA-Public Use
  Company Number: PHHY2008DE21496

PATIENT
  Sex: Female
  Weight: 73 kg

DRUGS (3)
  1. ZOMETA [Suspect]
     Indication: PROPHYLAXIS
     Dosage: 4 MG EVERY 4 WEEKS
     Route: 042
     Dates: start: 20051229, end: 20070906
  2. IBUPROFEN [Concomitant]
     Dosage: 800 MG/DAY
     Dates: start: 20051130
  3. NEXAVAR [Concomitant]
     Dosage: 800 MG/DAY
     Dates: start: 20061012

REACTIONS (1)
  - CEREBROVASCULAR ACCIDENT [None]
